FAERS Safety Report 6596909-3 (Version None)
Quarter: 2010Q1

REPORT INFORMATION
  Report Type: 
  Country: None (occurrence: None)
  Receive Date: 20100222
  Receipt Date: 20100222
  Transmission Date: 20100710
  Serious: No
  Sender: FDA-Public Use
  Company Number: None

PATIENT
  Age: 47 Month
  Sex: Male
  Weight: 76.2043 kg

DRUGS (1)
  1. EXFORGE [Suspect]
     Indication: HYPERTENSION
     Dosage: 10/320MG ONCE A DAY OTHER
     Route: 050
     Dates: start: 20091010, end: 20100114

REACTIONS (2)
  - BLOOD TEST ABNORMAL [None]
  - LIVER INJURY [None]
